FAERS Safety Report 7280010-X (Version None)
Quarter: 2011Q1

REPORT INFORMATION
  Report Type: 
  Country: None (occurrence: None)
  Receive Date: 20110125
  Receipt Date: 20110118
  Transmission Date: 20110831
  Serious: Yes (Death, Hospitalization, Other)
  Sender: FDA-Public Use
  Company Number: 20109337

PATIENT
  Sex: Male

DRUGS (1)
  1. LIORESAL [Suspect]
     Indication: MUSCLE SPASTICITY
     Dosage: 300 MCG, DAILY, INTRATHECAL
     Route: 037

REACTIONS (4)
  - DEVICE ALARM ISSUE [None]
  - INFECTION [None]
  - WOUND DEHISCENCE [None]
  - DEVICE POWER SOURCE ISSUE [None]
